FAERS Safety Report 20240272 (Version 1)
Quarter: 2021Q4

REPORT INFORMATION
  Report Type: Spontaneous
  Country: US (occurrence: None)
  Receive Date: 20211227
  Receipt Date: 20211227
  Transmission Date: 20220304
  Serious: No
  Sender: FDA-Public Use
  Company Number: None

PATIENT
  Age: 59 Year
  Sex: Female

DRUGS (2)
  1. COSENTYX [Suspect]
     Active Substance: SECUKINUMAB
     Dosage: OTHER FREQUENCY : OTHER;?
     Route: 058
     Dates: start: 202107
  2. OTEZLA [Suspect]
     Active Substance: APREMILAST

REACTIONS (4)
  - Alopecia [None]
  - Inadequate analgesia [None]
  - Drug effect less than expected [None]
  - Spinal fusion surgery [None]

NARRATIVE: CASE EVENT DATE: 20210727
